FAERS Safety Report 15640388 (Version 1)
Quarter: 2018Q4

REPORT INFORMATION
  Report Type: Report from Study
  Country: BR (occurrence: BR)
  Receive Date: 20181120
  Receipt Date: 20181120
  Transmission Date: 20190205
  Serious: Yes (Hospitalization, Other)
  Sender: FDA-Public Use
  Company Number: PHHY2018BR159968

PATIENT
  Sex: Female
  Weight: 42 kg

DRUGS (2)
  1. ACLASTA [Suspect]
     Active Substance: ZOLEDRONIC ACID
     Dosage: 1 DF, Q12MO (5MG/100ML)
     Route: 042
     Dates: start: 201410
  2. ACLASTA [Suspect]
     Active Substance: ZOLEDRONIC ACID
     Indication: OSTEOPOROSIS
     Dosage: 1 DF, Q12MO (5MG/100ML)
     Route: 042
     Dates: start: 201301

REACTIONS (7)
  - Dysphagia [Not Recovered/Not Resolved]
  - Pneumonia [Unknown]
  - Mobility decreased [Not Recovered/Not Resolved]
  - Gastric disorder [Recovering/Resolving]
  - Weight decreased [Unknown]
  - Abdominal discomfort [Unknown]
  - Oesophageal discomfort [Unknown]
